FAERS Safety Report 25644128 (Version 1)
Quarter: 2025Q3

REPORT INFORMATION
  Report Type: Other
  Country: US (occurrence: US)
  Receive Date: 20250805
  Receipt Date: 20250805
  Transmission Date: 20251020
  Serious: Yes (Hospitalization, Other)
  Sender: ANI
  Company Number: US-ANIPHARMA-023925

PATIENT
  Age: 40 Year
  Sex: Male

DRUGS (1)
  1. NICARDIPINE [Suspect]
     Active Substance: NICARDIPINE
     Indication: Hypertension

REACTIONS (1)
  - Angioedema [Recovering/Resolving]
